FAERS Safety Report 5117554-2 (Version None)
Quarter: 2006Q3

REPORT INFORMATION
  Report Type: 
  Country: None (occurrence: None)
  Receive Date: 20060926
  Receipt Date: 20060913
  Transmission Date: 20061208
  Serious: Yes (Hospitalization)
  Sender: FDA-Public Use
  Company Number: DE200609003853

PATIENT
  Age: 69 Year
  Sex: Male

DRUGS (5)
  1. ZYPREXA [Suspect]
     Indication: DEPRESSION
     Dosage: 5 MG, DAILY (1/D), ORAL
     Route: 048
  2. MIRTAZAPINE [Concomitant]
  3. CIPRALEX /DEN/ (ESCITALOPRAM) [Concomitant]
  4. TAMSULOSIN HCL [Concomitant]
  5. LEVOTHYROXINE SODIUM [Concomitant]

REACTIONS (2)
  - DEEP VEIN THROMBOSIS [None]
  - DRUG INTERACTION [None]
